FAERS Safety Report 7361076-5 (Version None)
Quarter: 2011Q1

REPORT INFORMATION
  Report Type: 
  Country: None (occurrence: None)
  Receive Date: 20110318
  Receipt Date: 20110220
  Transmission Date: 20110831
  Serious: No
  Sender: FDA-Public Use
  Company Number: US-BAYER-2011-017622

PATIENT
  Sex: Female
  Weight: 93 kg

DRUGS (1)
  1. ALEVE (CAPLET) [Suspect]
     Indication: ABDOMINAL PAIN UPPER
     Dosage: DAILY, ONCE
     Route: 048
     Dates: start: 20110220

REACTIONS (3)
  - BLISTER [None]
  - DIZZINESS [None]
  - NO ADVERSE EVENT [None]
